FAERS Safety Report 20155841 (Version 1)
Quarter: 2021Q4

REPORT INFORMATION
  Report Type: Spontaneous
  Country: US (occurrence: None)
  Receive Date: 20211206
  Receipt Date: 20211206
  Transmission Date: 20220304
  Serious: Yes (Other)
  Sender: FDA-Public Use
  Company Number: None

PATIENT
  Age: 26 Year
  Sex: Male
  Weight: 63 kg

DRUGS (1)
  1. OLD SPICE CLASSIC ORIGINAL SCENT [Suspect]
     Active Substance: ALUMINUM ZIRCONIUM TRICHLOROHYDREX GLY

REACTIONS (3)
  - Rash [None]
  - Burning sensation [None]
  - Parosmia [None]

NARRATIVE: CASE EVENT DATE: 20211110
